FAERS Safety Report 6449977-3 (Version None)
Quarter: 2009Q4

REPORT INFORMATION
  Report Type: 
  Country: None (occurrence: None)
  Receive Date: 20091120
  Receipt Date: 20091120
  Transmission Date: 20100525
  Serious: Yes (Other)
  Sender: FDA-Public Use
  Company Number: None

PATIENT
  Age: 23 Year
  Sex: Male
  Weight: 88.4514 kg

DRUGS (2)
  1. LEXAPRO [Suspect]
     Indication: ANXIETY
     Dosage: 5MG ONE PER DAY PO
     Route: 048
     Dates: start: 20091114, end: 20091117
  2. LEXAPRO [Suspect]
     Indication: SEASONAL AFFECTIVE DISORDER
     Dosage: 5MG ONE PER DAY PO
     Route: 048
     Dates: start: 20091114, end: 20091117

REACTIONS (2)
  - RASH ERYTHEMATOUS [None]
  - RASH PRURITIC [None]
